FAERS Safety Report 9782912 (Version 1)
Quarter: 2013Q4

REPORT INFORMATION
  Report Type: Spontaneous
  Country: US (occurrence: US)
  Receive Date: 20131226
  Receipt Date: 20131226
  Transmission Date: 20140711
  Serious: No
  Sender: FDA-Public Use
  Company Number: US-ABBVIE-13P-163-1149447-00

PATIENT
  Age: 67 Year
  Sex: Male
  Weight: 136.2 kg

DRUGS (2)
  1. LUPRON DEPOT [Suspect]
     Indication: PROSTATE CANCER
     Route: 030
     Dates: start: 20130913
  2. LUPRON DEPOT [Suspect]
     Route: 030
     Dates: start: 20130918

REACTIONS (1)
  - Inappropriate schedule of drug administration [Unknown]
